FAERS Safety Report 8440344-X (Version None)
Quarter: 2012Q2

REPORT INFORMATION
  Report Type: 
  Country: None (occurrence: None)
  Receive Date: 20120615
  Receipt Date: 20120114
  Transmission Date: 20120825
  Serious: No
  Sender: FDA-Public Use
  Company Number: US-BAYER-2012-059148

PATIENT
  Sex: Male

DRUGS (1)
  1. GADAVIST [Suspect]

REACTIONS (1)
  - NAUSEA [None]
